FAERS Safety Report 25600048 (Version 1)
Quarter: 2025Q3

REPORT INFORMATION
  Report Type: Spontaneous
  Country: AE (occurrence: AE)
  Receive Date: 20250724
  Receipt Date: 20250724
  Transmission Date: 20251021
  Serious: Yes (Other)
  Sender: ALKEM
  Company Number: AE-ALKEM LABORATORIES LIMITED-AE-ALKEM-2024-20642

PATIENT
  Sex: Female

DRUGS (2)
  1. LAMOTRIGINE [Suspect]
     Active Substance: LAMOTRIGINE
     Indication: Epilepsy
     Route: 065
  2. FOLIC ACID [Concomitant]
     Active Substance: FOLIC ACID
     Indication: Product used for unknown indication
     Route: 065

REACTIONS (1)
  - Exposure during pregnancy [Unknown]
